FAERS Safety Report 14269973 (Version 1)
Quarter: 2017Q4

REPORT INFORMATION
  Report Type: Spontaneous
  Country: FR (occurrence: FR)
  Receive Date: 20171211
  Receipt Date: 20171211
  Transmission Date: 20180321
  Serious: Yes (Hospitalization)
  Sender: FDA-Public Use
  Company Number: FR-OTSUKA-J201406797

PATIENT
  Age: 32 Year
  Sex: Male

DRUGS (6)
  1. PAROXETINE. [Concomitant]
     Active Substance: PAROXETINE
     Dosage: UNK
     Dates: end: 20140819
  2. ABILIFY [Suspect]
     Active Substance: ARIPIPRAZOLE
     Indication: DEPRESSION
  3. TERCIAN [Suspect]
     Active Substance: CYAMEMAZINE
     Indication: PRODUCT USED FOR UNKNOWN INDICATION
     Dosage: 50 MILLIGRAM
     Route: 048
     Dates: start: 201408, end: 201408
  4. PAROXETINE. [Concomitant]
     Active Substance: PAROXETINE
     Indication: PRODUCT USED FOR UNKNOWN INDICATION
     Dosage: UNK
     Route: 065
     Dates: end: 20140819
  5. ABILIFY [Suspect]
     Active Substance: ARIPIPRAZOLE
     Indication: PRODUCT USED FOR UNKNOWN INDICATION
     Dosage: 20 MILLIGRAM 2/1 DAY
     Route: 048
     Dates: start: 201408, end: 201408
  6. TERCIAN [Suspect]
     Active Substance: CYAMEMAZINE
     Indication: DEPRESSION

REACTIONS (3)
  - Product use in unapproved indication [Unknown]
  - Dyskinesia [Recovered/Resolved]
  - Off label use [Unknown]

NARRATIVE: CASE EVENT DATE: 20140823
